FAERS Safety Report 17093272 (Version 1)
Quarter: 2019Q4

REPORT INFORMATION
  Report Type: Spontaneous
  Country: GB (occurrence: GB)
  Receive Date: 20191129
  Receipt Date: 20191129
  Transmission Date: 20200122
  Serious: Yes (Other)
  Sender: FDA-Public Use
  Company Number: GB-TEVA-2019-GB-1142180

PATIENT
  Age: 57 Year
  Sex: Female
  Weight: 65 kg

DRUGS (2)
  1. CLARITHROMYCIN CITRATE [Suspect]
     Active Substance: CLARITHROMYCIN CITRATE
     Indication: LOWER RESPIRATORY TRACT INFECTION
     Dosage: 500
     Route: 048
     Dates: start: 20190920, end: 20190924
  2. SEROTONIN [Concomitant]
     Active Substance: SEROTONIN

REACTIONS (5)
  - Anxiety [Not Recovered/Not Resolved]
  - Hallucination [Not Recovered/Not Resolved]
  - Intrusive thoughts [Not Recovered/Not Resolved]
  - Depression suicidal [Not Recovered/Not Resolved]
  - Psychotic disorder [Not Recovered/Not Resolved]
